FAERS Safety Report 5847607-2 (Version None)
Quarter: 2008Q3

REPORT INFORMATION
  Report Type: 
  Country: None (occurrence: None)
  Receive Date: 20080815
  Receipt Date: 20080815
  Transmission Date: 20090109
  Serious: No
  Sender: FDA-Public Use
  Company Number: None

PATIENT
  Age: 69 Year
  Sex: Female
  Weight: 66.9056 kg

DRUGS (11)
  1. ALENDRONATE SODIUM [Suspect]
     Indication: OSTEOPOROSIS
     Dosage: ONE TAB Q WEEK PO
     Route: 048
     Dates: start: 20080401, end: 20080701
  2. SIMVASTATIN [Concomitant]
  3. COZAAR [Concomitant]
  4. AMLODIPINE [Concomitant]
  5. HYDROCHLOROTHIAZIDE [Concomitant]
  6. NEXIUM [Concomitant]
  7. SYNTHROID [Concomitant]
  8. ZYRTEC [Concomitant]
  9. OSCAL [Concomitant]
  10. SPIRIVA [Concomitant]
  11. ALBUTEROL [Concomitant]

REACTIONS (1)
  - OEDEMA PERIPHERAL [None]
